FAERS Safety Report 10330932 (Version 2)
Quarter: 2014Q3

REPORT INFORMATION
  Report Type: Spontaneous
  Country: US (occurrence: US)
  Receive Date: 20140722
  Receipt Date: 20140923
  Transmission Date: 20150326
  Serious: Yes (Other)
  Sender: FDA-Public Use
  Company Number: US-ELI_LILLY_AND_COMPANY-US201407005979

PATIENT
  Age: 81 Year
  Sex: Female
  Weight: 85.26 kg

DRUGS (2)
  1. HUMALOG [Suspect]
     Active Substance: INSULIN LISPRO
     Indication: PRODUCT USED FOR UNKNOWN INDICATION
     Dosage: 30 U, EACH MORNING
     Route: 065
  2. HUMALOG [Suspect]
     Active Substance: INSULIN LISPRO
     Dosage: 40 U, EACH EVENING
     Route: 065

REACTIONS (13)
  - Abdominal pain [Unknown]
  - Electrocardiogram ST-T change [Unknown]
  - Pyrexia [Unknown]
  - Chest pain [Recovered/Resolved]
  - Abdominal pain upper [Unknown]
  - Dehydration [Recovered/Resolved]
  - Acute coronary syndrome [Unknown]
  - Diarrhoea [Unknown]
  - Urinary tract infection [Recovered/Resolved]
  - Hypoglycaemia [Recovered/Resolved]
  - Confusional state [Unknown]
  - Hyperglycaemia [Recovered/Resolved]
  - Blood sodium decreased [Recovered/Resolved]

NARRATIVE: CASE EVENT DATE: 20140610
